FAERS Safety Report 14881895 (Version 1)
Quarter: 2018Q2

REPORT INFORMATION
  Report Type: Spontaneous
  Country: FR (occurrence: FR)
  Receive Date: 20180511
  Receipt Date: 20180511
  Transmission Date: 20180711
  Serious: Yes (Hospitalization, Other)
  Sender: FDA-Public Use
  Company Number: FR-AUROBINDO-AUR-APL-2018-025181

PATIENT
  Age: 24624 Day
  Sex: Male
  Weight: 66 kg

DRUGS (6)
  1. FLUOXETINE [Concomitant]
     Active Substance: FLUOXETINE HYDROCHLORIDE
     Indication: PRODUCT USED FOR UNKNOWN INDICATION
     Dosage: 20 MG (1/2 ON MORNING) ()
     Route: 065
  2. VIAGRA [Concomitant]
     Active Substance: SILDENAFIL CITRATE
     Indication: PRODUCT USED FOR UNKNOWN INDICATION
     Dosage: 50, IF NEEDED ()
     Route: 065
  3. PERINDOPRIL [Suspect]
     Active Substance: PERINDOPRIL
     Indication: HYPERTENSION
     Dosage: 2 MILLIGRAM, 12 HOUR
     Route: 048
  4. DURVALUMAB. [Suspect]
     Active Substance: DURVALUMAB
     Indication: NON-SMALL CELL LUNG CANCER
     Dosage: 670 MILLIGRAM, 2 WEEK
     Route: 042
  5. PRAVASTATIN. [Concomitant]
     Active Substance: PRAVASTATIN
     Indication: PRODUCT USED FOR UNKNOWN INDICATION
     Dosage: 20 MG (ONCE A DAY ON EVENING) ()
     Route: 065
  6. GANFORT [Concomitant]
     Active Substance: BIMATOPROST\TIMOLOL
     Indication: PRODUCT USED FOR UNKNOWN INDICATION
     Dosage: (IN EACH EYE) ON EVENING ()
     Route: 065

REACTIONS (11)
  - Hypotension [Recovered/Resolved]
  - Adrenal insufficiency [Unknown]
  - Chills [Unknown]
  - Thyroiditis [Unknown]
  - Hyperhidrosis [Unknown]
  - Hyperthyroidism [Not Recovered/Not Resolved]
  - Rash pruritic [Unknown]
  - Diarrhoea [Unknown]
  - Malaise [Unknown]
  - Asthenia [Unknown]
  - Hypophysitis [Unknown]

NARRATIVE: CASE EVENT DATE: 20180415
